FAERS Safety Report 25251675 (Version 1)
Quarter: 2025Q2

REPORT INFORMATION
  Report Type: Spontaneous
  Country: CN (occurrence: CN)
  Receive Date: 20250429
  Receipt Date: 20250429
  Transmission Date: 20250717
  Serious: Yes (Hospitalization)
  Sender: MERCK SHARP & DOHME LLC
  Company Number: CN-009507513-2279747

PATIENT
  Age: 73 Year
  Sex: Male
  Weight: 42.5 kg

DRUGS (2)
  1. INVANZ [Suspect]
     Active Substance: ERTAPENEM SODIUM
     Indication: Anti-infective therapy
     Dosage: 1 G, QD
     Route: 041
     Dates: start: 20250401, end: 20250418
  2. METRONIDAZOLE\SODIUM CHLORIDE [Suspect]
     Active Substance: METRONIDAZOLE\SODIUM CHLORIDE
     Indication: Anti-infective therapy
     Dosage: 100 ML, BID
     Route: 041
     Dates: start: 20250407, end: 20250418

REACTIONS (5)
  - Restlessness [Recovering/Resolving]
  - Crying [Recovering/Resolving]
  - Initial insomnia [Recovering/Resolving]
  - Disorganised speech [Recovering/Resolving]
  - Hallucination, visual [Recovering/Resolving]

NARRATIVE: CASE EVENT DATE: 20250414
